FAERS Safety Report 6474143-5 (Version None)
Quarter: 2009Q4

REPORT INFORMATION
  Report Type: 
  Country: None (occurrence: None)
  Receive Date: 20091204
  Receipt Date: 20091127
  Transmission Date: 20100525
  Serious: Yes (Hospitalization)
  Sender: FDA-Public Use
  Company Number: BR-ABBOTT-09P-020-0610565-00

PATIENT
  Age: 50 Year
  Sex: Female
  Weight: 60 kg

DRUGS (1)
  1. HUMIRA [Suspect]
     Indication: CROHN'S DISEASE
     Dosage: INDUCTION DOSE: 160MG - 80MG
     Route: 058
     Dates: start: 20070101

REACTIONS (5)
  - ABDOMINAL PAIN [None]
  - ABSCESS [None]
  - DRUG INEFFECTIVE [None]
  - FISTULA [None]
  - PYREXIA [None]
